FAERS Safety Report 13518384 (Version 3)
Quarter: 2017Q2

REPORT INFORMATION
  Report Type: Report from Study
  Country: US (occurrence: US)
  Receive Date: 20170505
  Receipt Date: 20170623
  Transmission Date: 20170830
  Serious: Yes (Hospitalization, Other)
  Sender: FDA-Public Use
  Company Number: US-AMGEN-USASL2017065840

PATIENT
  Age: 60 Year
  Sex: Male
  Weight: 90.25 kg

DRUGS (12)
  1. REPATHA [Suspect]
     Active Substance: EVOLOCUMAB
     Indication: DYSLIPIDAEMIA
  2. GLYBURIDE. [Concomitant]
     Active Substance: GLYBURIDE
     Indication: DIABETES MELLITUS
     Dosage: 10 MG, QD
     Dates: start: 20160512
  3. FOLIC ACID. [Concomitant]
     Active Substance: FOLIC ACID
     Indication: DIABETES MELLITUS
     Dosage: 1 MG, QD
     Dates: start: 20160512
  4. REPATHA [Suspect]
     Active Substance: EVOLOCUMAB
     Indication: HYPERCHOLESTEROLAEMIA
  5. VASOTEC [Concomitant]
     Active Substance: ENALAPRIL MALEATE
     Indication: CORONARY ARTERY DISEASE
     Dosage: 20 MG, QD
     Dates: start: 20170120
  6. ACTOS [Concomitant]
     Active Substance: PIOGLITAZONE HYDROCHLORIDE
     Dosage: 30 MG, QD
     Dates: start: 20160512
  7. REPATHA [Suspect]
     Active Substance: EVOLOCUMAB
     Indication: HYPERLIPIDAEMIA
     Dosage: 140 MG/ML, Q2WK
     Route: 065
     Dates: start: 20161219, end: 201702
  8. IMDUR [Concomitant]
     Active Substance: ISOSORBIDE MONONITRATE
     Indication: CORONARY ARTERY DISEASE
     Dosage: 30 MG, QD
     Dates: start: 20170202
  9. TOPROL XL [Concomitant]
     Active Substance: METOPROLOL SUCCINATE
     Indication: CORONARY ARTERY DISEASE
     Dosage: 100 MG, QD
     Dates: start: 20170120
  10. BRILINTA [Concomitant]
     Active Substance: TICAGRELOR
     Indication: CORONARY ARTERY DISEASE
     Dosage: 90 MG, BID
     Dates: start: 20170120
  11. METFORMIN [Concomitant]
     Active Substance: METFORMIN HYDROCHLORIDE
     Indication: DIABETES MELLITUS
     Dosage: 500 MG, BID
     Dates: start: 20160512
  12. ECOTRIN [Concomitant]
     Active Substance: ASPIRIN
     Indication: CORONARY ARTERY DISEASE
     Dosage: 81 MG, QD
     Dates: start: 20160512

REACTIONS (9)
  - Dyspnoea [Unknown]
  - Rash generalised [Recovering/Resolving]
  - Myalgia [Unknown]
  - Drug effect incomplete [Unknown]
  - Epistaxis [Unknown]
  - Pain [Unknown]
  - Chest pain [Recovering/Resolving]
  - Vascular graft thrombosis [Unknown]
  - Musculoskeletal pain [Unknown]

NARRATIVE: CASE EVENT DATE: 201612
